FAERS Safety Report 16490429 (Version 1)
Quarter: 2019Q2

REPORT INFORMATION
  Report Type: Spontaneous
  Country: US (occurrence: US)
  Receive Date: 20190628
  Receipt Date: 20190628
  Transmission Date: 20190711
  Serious: No
  Sender: FDA-Public Use
  Company Number: US-TEVA-2019-US-1059375

PATIENT
  Sex: Female

DRUGS (3)
  1. PANTOPRAZOLE DR REDDY [Concomitant]
  2. SUCRALFATE. [Suspect]
     Active Substance: SUCRALFATE
     Dosage: DOSE STRENGTH:  1
     Dates: start: 20190522
  3. CEPHALEXIN LUPIN [Concomitant]

REACTIONS (2)
  - Pruritus [Unknown]
  - Rash erythematous [Unknown]

NARRATIVE: CASE EVENT DATE: 20190522
